FAERS Safety Report 11910850 (Version 1)
Quarter: 2016Q1

REPORT INFORMATION
  Report Type: Spontaneous
  Country: US (occurrence: None)
  Receive Date: 20160111
  Receipt Date: 20160111
  Transmission Date: 20160526
  Serious: No
  Sender: FDA-Public Use
  Company Number: None

PATIENT
  Age: 32 Year
  Sex: Female
  Weight: 63.5 kg

DRUGS (2)
  1. APRI [Concomitant]
     Active Substance: DESOGESTREL\ETHINYL ESTRADIOL
  2. ERYTHROMYCIN OPHTHALMIC 0.5% BAUSCH AND LOMB [Suspect]
     Active Substance: ERYTHROMYCIN
     Indication: CORNEAL ABRASION
     Route: 031
     Dates: start: 20160105, end: 20160106

REACTIONS (9)
  - Erythema of eyelid [None]
  - Eyelid oedema [None]
  - Vomiting [None]
  - Eyelids pruritus [None]
  - Eye swelling [None]
  - Eye pruritus [None]
  - Malaise [None]
  - Nausea [None]
  - Dizziness [None]

NARRATIVE: CASE EVENT DATE: 20160106
